FAERS Safety Report 8108355-1 (Version None)
Quarter: 2012Q1

REPORT INFORMATION
  Report Type: 
  Country: None (occurrence: None)
  Receive Date: 20120202
  Receipt Date: 20120124
  Transmission Date: 20120608
  Serious: Yes (Hospitalization)
  Sender: FDA-Public Use
  Company Number: PHHY2012CA001160

PATIENT
  Sex: Male

DRUGS (3)
  1. CHEMOTHERAPEUTICS FOR TOPICAL USE [Concomitant]
  2. AFINITOR [Suspect]
     Indication: METASTATIC CARCINOID TUMOUR
     Dosage: 10 MG, EVERY DAY
     Route: 048
     Dates: end: 20120119
  3. SANDOSTATIN LAR [Suspect]
     Indication: METASTATIC CARCINOID TUMOUR
     Dosage: 30 MG, QMO
     Route: 030
     Dates: start: 20090521

REACTIONS (3)
  - HYPOGLYCAEMIA [None]
  - BLOOD GLUCOSE FLUCTUATION [None]
  - NIGHT SWEATS [None]
